FAERS Safety Report 7818110-5 (Version None)
Quarter: 2011Q4

REPORT INFORMATION
  Report Type: 
  Country: None (occurrence: None)
  Receive Date: 20111017
  Receipt Date: 20111010
  Transmission Date: 20120403
  Serious: Yes (Death, Other)
  Sender: FDA-Public Use
  Company Number: GB-ROCHE-1003441

PATIENT
  Sex: Female
  Weight: 52.074 kg

DRUGS (6)
  1. SENNA [Concomitant]
     Route: 065
  2. LUCENTIS [Suspect]
     Indication: PRODUCT USED FOR UNKNOWN INDICATION
     Route: 050
  3. LOPRAZOLAM [Concomitant]
     Route: 048
  4. LATANOPROST [Concomitant]
     Route: 001
  5. ACETAMINOPHEN [Concomitant]
     Route: 048
  6. ISPAGHULA HUSK [Concomitant]
     Route: 065

REACTIONS (8)
  - PULMONARY EMBOLISM [None]
  - DEEP VEIN THROMBOSIS [None]
  - LACERATION [None]
  - BRONCHOPNEUMONIA [None]
  - BRAIN COMPRESSION [None]
  - IMMOBILE [None]
  - SUBDURAL HAEMATOMA [None]
  - HEAD INJURY [None]
